FAERS Safety Report 13688412 (Version 1)
Quarter: 2017Q2

REPORT INFORMATION
  Report Type: Spontaneous
  Country: US (occurrence: US)
  Receive Date: 20170626
  Receipt Date: 20170626
  Transmission Date: 20170830
  Serious: Yes (Other)
  Sender: FDA-Public Use
  Company Number: US-TEVA-701618USA

PATIENT
  Sex: Female

DRUGS (1)
  1. DESIPRAMINE [Suspect]
     Active Substance: DESIPRAMINE
     Route: 065

REACTIONS (2)
  - Vision blurred [Unknown]
  - Cardiac flutter [Unknown]
